FAERS Safety Report 8282357-7 (Version None)
Quarter: 2012Q2

REPORT INFORMATION
  Report Type: 
  Country: None (occurrence: None)
  Receive Date: 20120413
  Receipt Date: 20120404
  Transmission Date: 20120825
  Serious: Yes (Other)
  Sender: FDA-Public Use
  Company Number: JP-PFIZER INC-2012079859

PATIENT
  Sex: Female

DRUGS (2)
  1. CELEBREX [Suspect]
     Dosage: 200 MG/DAY
     Route: 048
  2. MUCOSTA [Concomitant]
     Route: 048

REACTIONS (1)
  - GASTROINTESTINAL PERFORATION [None]
